FAERS Safety Report 10204095 (Version 2)
Quarter: 2014Q2

REPORT INFORMATION
  Report Type: Spontaneous
  Country: PT (occurrence: PT)
  Receive Date: 20140529
  Receipt Date: 20140627
  Transmission Date: 20141212
  Serious: Yes (Hospitalization)
  Sender: FDA-Public Use
  Company Number: PT-SA-2014SA068276

PATIENT
  Age: 88 Year
  Sex: Female
  Weight: 65 kg

DRUGS (8)
  1. LASIX [Suspect]
     Indication: PULMONARY OEDEMA
     Route: 048
     Dates: start: 20140329
  2. SIMVASTATIN [Interacting]
     Indication: HYPERCHOLESTEROLAEMIA
     Route: 048
     Dates: start: 20140329, end: 20140505
  3. RAMIPRIL/HYDROCHLOROTHIAZIDE [Concomitant]
     Indication: HYPERTENSION
     Route: 048
     Dates: start: 20140329
  4. BISOPROLOL [Concomitant]
     Indication: CARDIAC FAILURE
     Route: 048
     Dates: start: 20140329
  5. LYRICA [Concomitant]
     Indication: NEURALGIA
     Route: 048
     Dates: start: 2009
  6. ACETYLSALICYLIC ACID [Concomitant]
     Indication: CARDIOVASCULAR EVENT PROPHYLAXIS
     Route: 048
     Dates: start: 20140329
  7. GLUCOSAMINE [Concomitant]
     Indication: OSTEOARTHRITIS
     Route: 048
     Dates: start: 2011
  8. OMEPRAZOLE [Concomitant]
     Indication: PROPHYLAXIS AGAINST GASTROINTESTINAL ULCER
     Route: 048
     Dates: start: 20140329

REACTIONS (2)
  - Rhabdomyolysis [Recovered/Resolved]
  - Drug interaction [Unknown]
